FAERS Safety Report 5349322-0 (Version None)
Quarter: 2007Q2

REPORT INFORMATION
  Report Type: 
  Country: None (occurrence: None)
  Receive Date: 20070607
  Receipt Date: 20070605
  Transmission Date: 20071010
  Serious: Yes (Hospitalization)
  Sender: FDA-Public Use
  Company Number: B0473938A

PATIENT
  Age: 38 Year
  Sex: Male

DRUGS (2)
  1. CLAMOXYL [Suspect]
     Dosage: 1G SINGLE DOSE
     Route: 048
     Dates: start: 20060929, end: 20060929
  2. SPECIFIC IMMUNOTHERAPY [Concomitant]
     Route: 060

REACTIONS (5)
  - ANAPHYLACTIC SHOCK [None]
  - EYELID OEDEMA [None]
  - GENERALISED ERYTHEMA [None]
  - MALAISE [None]
  - PRURITUS [None]
